FAERS Safety Report 11573693 (Version 1)
Quarter: 2015Q3

REPORT INFORMATION
  Report Type: Report from Study
  Country: US (occurrence: US)
  Receive Date: 20150929
  Receipt Date: 20150929
  Transmission Date: 20151125
  Serious: Yes (Other)
  Sender: FDA-Public Use
  Company Number: US-REGENERON PHARMACEUTICALS, INC.-2015-12516

PATIENT

DRUGS (9)
  1. AMICAR [Suspect]
     Active Substance: AMINOCAPROIC ACID
     Indication: HAEMORRHAGE PROPHYLAXIS
     Dosage: 12 ML MILLILITRE(S), ONE HOUR PRIOR TO EYLEA INJECTION
     Dates: start: 201508, end: 201508
  2. ATORVASTATIN [Concomitant]
     Active Substance: ATORVASTATIN
     Dosage: UNK
  3. ASA [Concomitant]
     Active Substance: ASPIRIN
     Dosage: 81 MG MILLIGRAM(S), UNK
  4. AMICAR [Suspect]
     Active Substance: AMINOCAPROIC ACID
     Dosage: 12 ML MILLILITRE(S), EIGHT HOURS AFTER EYLEA INJECTION
     Dates: start: 201508, end: 201508
  5. METFORMIN [Concomitant]
     Active Substance: METFORMIN HYDROCHLORIDE
     Dosage: UNK
  6. LANTUS [Concomitant]
     Active Substance: INSULIN GLARGINE
     Dosage: UNK
  7. METOPROLOL [Concomitant]
     Active Substance: METOPROLOL
     Dosage: UNK
  8. NOVOLOG [Concomitant]
     Active Substance: INSULIN ASPART
     Dosage: UNK
  9. EYLEA [Suspect]
     Active Substance: AFLIBERCEPT
     Indication: MACULAR DEGENERATION
     Dosage: UNK, FIRST INJECTION, LEFT EYE (OS)
     Route: 031
     Dates: start: 201508, end: 201508

REACTIONS (1)
  - Eye haemorrhage [Unknown]

NARRATIVE: CASE EVENT DATE: 201508
